FAERS Safety Report 9037010 (Version 1)
Quarter: 2013Q1

REPORT INFORMATION
  Report Type: Spontaneous
  Country: US (occurrence: None)
  Receive Date: 20130123
  Receipt Date: 20130123
  Transmission Date: 20140127
  Serious: Yes (Other)
  Sender: FDA-Public Use
  Company Number: None

PATIENT
  Age: 34 Year
  Sex: Female
  Weight: 83.46 kg

DRUGS (1)
  1. VALACYCLOVIR HYDROCHLORIDE [Suspect]
     Indication: HERPES VIRUS INFECTION
     Dosage: 500MG 1 QD ORAL 047
     Route: 048
     Dates: start: 20080128, end: 20100126

REACTIONS (3)
  - Herpes virus infection [None]
  - Product substitution issue [None]
  - Therapeutic response unexpected with drug substitution [None]
